FAERS Safety Report 9408817 (Version 2)
Quarter: 2013Q3

REPORT INFORMATION
  Report Type: Spontaneous
  Country: US (occurrence: US)
  Receive Date: 20130719
  Receipt Date: 20130724
  Transmission Date: 20140515
  Serious: Yes (Death)
  Sender: FDA-Public Use
  Company Number: US-ROCHE-1250677

PATIENT
  Sex: Male

DRUGS (2)
  1. XELODA [Suspect]
     Indication: PANCREATIC CARCINOMA
     Dosage: 3 TABS IN THE MORNING AND 4 TABS IN EVENING
     Route: 048
  2. XELODA [Suspect]
     Indication: GASTRIC CANCER

REACTIONS (2)
  - Pancreatic carcinoma metastatic [Fatal]
  - Hepatorenal syndrome [Fatal]
